FAERS Safety Report 21842386 (Version 1)
Quarter: 2023Q1

REPORT INFORMATION
  Report Type: Spontaneous
  Country: US (occurrence: US)
  Receive Date: 20230110
  Receipt Date: 20230110
  Transmission Date: 20230418
  Serious: Yes (Other)
  Sender: FDA-Public Use
  Company Number: US-SUNOVION-2023SUN000024

PATIENT
  Age: 26 Year
  Sex: Female

DRUGS (3)
  1. APTIOM [Suspect]
     Active Substance: ESLICARBAZEPINE ACETATE
     Indication: Seizure
     Dosage: 1200 MG (2 TABS 600MG), QD
     Route: 048
     Dates: start: 202208
  2. APTIOM [Suspect]
     Active Substance: ESLICARBAZEPINE ACETATE
     Dosage: 600 MG, BID
     Route: 048
  3. APTIOM [Suspect]
     Active Substance: ESLICARBAZEPINE ACETATE
     Dosage: 300 MG (HALF OF 600MG)
     Route: 048

REACTIONS (5)
  - Seizure [Unknown]
  - Drug ineffective [Unknown]
  - Brain operation [Unknown]
  - Inappropriate schedule of product administration [Unknown]
  - Intentional underdose [Unknown]

NARRATIVE: CASE EVENT DATE: 20220801
